FAERS Safety Report 21449122 (Version 2)
Quarter: 2022Q4

REPORT INFORMATION
  Report Type: Spontaneous
  Country: MX (occurrence: MX)
  Receive Date: 20221013
  Receipt Date: 20221223
  Transmission Date: 20230113
  Serious: Yes (Other)
  Sender: FDA-Public Use
  Company Number: MX-NOVOPROD-966072

PATIENT
  Age: 80 Year
  Sex: Male
  Weight: 95 kg

DRUGS (1)
  1. XULTOPHY 100/3.6 [Suspect]
     Active Substance: INSULIN DEGLUDEC\LIRAGLUTIDE
     Indication: Blood glucose increased
     Dosage: 34 IU, QD
     Dates: start: 202202

REACTIONS (4)
  - Blood glucose increased [Recovering/Resolving]
  - Device breakage [Unknown]
  - Product leakage [Unknown]
  - Product storage error [Unknown]

NARRATIVE: CASE EVENT DATE: 20221001
